FAERS Safety Report 4986713-1 (Version None)
Quarter: 2006Q2

REPORT INFORMATION
  Report Type: 
  Country: None (occurrence: None)
  Receive Date: 20060428
  Receipt Date: 20050114
  Transmission Date: 20061013
  Serious: Yes (Hospitalization, Other)
  Sender: FDA-Public Use
  Company Number: US-MERCK-0501USA02672

PATIENT
  Age: 72 Year
  Sex: Male
  Weight: 114 kg

DRUGS (1)
  1. VIOXX [Suspect]
     Indication: ARTHRITIS
     Route: 048
     Dates: start: 20020101, end: 20040901

REACTIONS (11)
  - ACUTE CORONARY SYNDROME [None]
  - BLINDNESS [None]
  - CARDIAC FAILURE CONGESTIVE [None]
  - CEREBRAL ISCHAEMIA [None]
  - CHEST DISCOMFORT [None]
  - CONGESTIVE CARDIOMYOPATHY [None]
  - CORONARY ARTERY DISEASE [None]
  - GASTRITIS [None]
  - SINUS DISORDER [None]
  - TINNITUS [None]
  - VERTIGO POSITIONAL [None]
